FAERS Safety Report 20134634 (Version 1)
Quarter: 2021Q4

REPORT INFORMATION
  Report Type: Spontaneous
  Country: KW (occurrence: KW)
  Receive Date: 20211201
  Receipt Date: 20211201
  Transmission Date: 20220303
  Serious: Yes (Life-Threatening, Hospitalization, Other)
  Sender: FDA-Public Use
  Company Number: KW-AMGEN-KWTSP2021186854

PATIENT
  Age: 56 Year
  Sex: Female

DRUGS (7)
  1. NEUPOGEN [Suspect]
     Active Substance: FILGRASTIM
     Indication: Neutropenia
     Dosage: 300 MICROGRAM
     Route: 065
  2. NEUPOGEN [Suspect]
     Active Substance: FILGRASTIM
     Indication: Off label use
  3. PEGASYS [Concomitant]
     Active Substance: PEGINTERFERON ALFA-2A
     Dosage: 180 MICROGRAM, QWK
  4. RIBAVIRIN [Concomitant]
     Active Substance: RIBAVIRIN
     Dosage: 1000 MILLIGRAM, QD
  5. ELTROMBOPAG [Concomitant]
     Active Substance: ELTROMBOPAG
     Dosage: 50 MILLIGRAM, QD
  6. ELTROMBOPAG [Concomitant]
     Active Substance: ELTROMBOPAG
     Dosage: 25 MICROGRAM
  7. TELAPREVIR [Concomitant]
     Active Substance: TELAPREVIR

REACTIONS (6)
  - Pneumonia [Recovered/Resolved]
  - Hepatitis C RNA increased [Recovered/Resolved]
  - Haemolytic anaemia [Unknown]
  - Urticaria [Unknown]
  - Thrombocytopenia [Recovered/Resolved]
  - Off label use [Unknown]
